FAERS Safety Report 13925490 (Version 1)
Quarter: 2017Q3

REPORT INFORMATION
  Report Type: Spontaneous
  Country: DK (occurrence: DK)
  Receive Date: 20170831
  Receipt Date: 20170831
  Transmission Date: 20171127
  Serious: Yes (Hospitalization)
  Sender: FDA-Public Use
  Company Number: DK-SA-2017SA157333

PATIENT
  Sex: Male
  Weight: 1.69 kg

DRUGS (18)
  1. LANTUS [Suspect]
     Active Substance: INSULIN GLARGINE
     Indication: EXPOSURE DURING BREAST FEEDING
     Route: 064
     Dates: start: 20160307
  2. LANTUS [Suspect]
     Active Substance: INSULIN GLARGINE
     Indication: EXPOSURE DURING BREAST FEEDING
     Route: 063
     Dates: start: 20160803
  3. SOLOSTAR [Suspect]
     Active Substance: DEVICE
     Indication: FOETAL EXPOSURE DURING PREGNANCY
     Dates: start: 20151224, end: 20160218
  4. TRACTOCILE [Concomitant]
     Active Substance: ATOSIBAN
  5. HALCION [Concomitant]
     Active Substance: TRIAZOLAM
  6. LANTUS [Suspect]
     Active Substance: INSULIN GLARGINE
     Indication: FOETAL EXPOSURE DURING PREGNANCY
     Route: 064
     Dates: start: 20160307
  7. TOUJEO [Suspect]
     Active Substance: INSULIN GLARGINE
     Indication: FOETAL EXPOSURE DURING PREGNANCY
     Route: 064
     Dates: start: 20151224, end: 20160218
  8. NOVORAPID [Concomitant]
     Active Substance: INSULIN ASPART
     Route: 064
     Dates: start: 2016
  9. MYCOSTATIN [Concomitant]
     Active Substance: NYSTATIN
     Dates: start: 2016
  10. FOLIC ACID. [Concomitant]
     Active Substance: FOLIC ACID
  11. LANTUS [Suspect]
     Active Substance: INSULIN GLARGINE
     Indication: EXPOSURE DURING BREAST FEEDING
     Route: 063
     Dates: start: 20160807
  12. LANTUS [Suspect]
     Active Substance: INSULIN GLARGINE
     Indication: FOETAL EXPOSURE DURING PREGNANCY
     Route: 063
     Dates: start: 20160803
  13. NOVORAPID [Concomitant]
     Active Substance: INSULIN ASPART
     Route: 064
     Dates: start: 2015
  14. CELESTON [Concomitant]
     Active Substance: BETAMETHASONE
  15. PAMOL [Concomitant]
     Active Substance: ACETAMINOPHEN
  16. LANTUS [Suspect]
     Active Substance: INSULIN GLARGINE
     Indication: FOETAL EXPOSURE DURING PREGNANCY
     Route: 063
     Dates: start: 20160807
  17. INNOHEP [Concomitant]
     Active Substance: TINZAPARIN SODIUM
  18. LEVEMIR [Concomitant]
     Active Substance: INSULIN DETEMIR
     Route: 063
     Dates: start: 20160807

REACTIONS (4)
  - Foetal exposure during pregnancy [Unknown]
  - Premature baby [Unknown]
  - Jaundice [Recovered/Resolved]
  - Exposure during breast feeding [Unknown]
